FAERS Safety Report 9109914 (Version 1)
Quarter: 2013Q1

REPORT INFORMATION
  Report Type: Spontaneous
  Country: US (occurrence: US)
  Receive Date: 20130222
  Receipt Date: 20130222
  Transmission Date: 20140127
  Serious: No
  Sender: FDA-Public Use
  Company Number: US-TEVA-387865USA

PATIENT
  Sex: Female
  Weight: 90.8 kg

DRUGS (4)
  1. QNASL [Suspect]
     Indication: RHINITIS
     Dosage: 320 MICROGRAM DAILY;
     Route: 045
     Dates: start: 20130201
  2. ANTIVERT [Concomitant]
     Indication: VERTIGO
     Route: 048
  3. HYDROCHLOROTHIAZIDE [Concomitant]
     Indication: DIURETIC THERAPY
     Route: 048
  4. FLUOXETINE [Concomitant]
     Route: 048

REACTIONS (4)
  - Dizziness [Not Recovered/Not Resolved]
  - Sneezing [Not Recovered/Not Resolved]
  - Epistaxis [Not Recovered/Not Resolved]
  - Ear congestion [Not Recovered/Not Resolved]
